FAERS Safety Report 10080868 (Version 1)
Quarter: 2014Q2

REPORT INFORMATION
  Report Type: Spontaneous
  Country: GB (occurrence: GB)
  Receive Date: 20140416
  Receipt Date: 20140416
  Transmission Date: 20141212
  Serious: Yes (Other)
  Sender: FDA-Public Use
  Company Number: GB-GALDERMA-GB14001331

PATIENT
  Age: 32 Year
  Sex: Female

DRUGS (2)
  1. EPIDUO [Suspect]
     Indication: ACNE
     Dosage: 0.1%-2.5%
     Route: 061
  2. METFORMIN [Concomitant]

REACTIONS (2)
  - Dyspnoea [Unknown]
  - Dermatitis allergic [Recovered/Resolved]
